FAERS Safety Report 7429505-6 (Version None)
Quarter: 2011Q2

REPORT INFORMATION
  Report Type: 
  Country: None (occurrence: None)
  Receive Date: 20110421
  Receipt Date: 20110418
  Transmission Date: 20111010
  Serious: Yes (Other)
  Sender: FDA-Public Use
  Company Number: JP-SANOFI-AVENTIS-2011SA010682

PATIENT
  Age: 80 Year
  Sex: Male

DRUGS (3)
  1. ALL OTHER THERAPEUTIC PRODUCTS [Suspect]
  2. ALL OTHER THERAPEUTIC PRODUCTS [Suspect]
  3. LASIX [Suspect]
     Route: 048
     Dates: start: 20090201, end: 20090301

REACTIONS (1)
  - RENAL FAILURE ACUTE [None]
